FAERS Safety Report 8825812 (Version 1)
Quarter: 2012Q4

REPORT INFORMATION
  Report Type: 
  Country: US (occurrence: US)
  Receive Date: 20121004
  Receipt Date: 20121004
  Transmission Date: 20130627
  Serious: Yes (Other)
  Sender: FDA-Public Use
  Company Number: US-BRISTOL-MYERS SQUIBB COMPANY-17002353

PATIENT
  Age: 25 Year
  Sex: Male

DRUGS (16)
  1. ABATACEPT SUBQ INJECTION 125MG/ML [Suspect]
     Indication: PSORIATIC ARTHROPATHY
     Dosage: Inter on unk date and restarted
     Route: 058
     Dates: start: 2009
  2. BENZTROPINE [Concomitant]
  3. CELEXA [Concomitant]
  4. CO-Q-10 PLUS [Concomitant]
  5. DEPAKOTE [Concomitant]
  6. DOVONEX [Concomitant]
  7. FOLIC ACID [Concomitant]
  8. HALDOL [Concomitant]
  9. KLONOPIN [Concomitant]
  10. LICORICE [Concomitant]
  11. METHOTREXATE [Concomitant]
  12. NEURONTIN [Concomitant]
  13. OMEGA-3 [Concomitant]
  14. RISPERDAL [Concomitant]
  15. TRAZODONE HCL [Concomitant]
  16. VOLTAREN [Concomitant]
     Dosage: Formualtion-voltaren gel

REACTIONS (4)
  - Fall [Unknown]
  - Facial bones fracture [Unknown]
  - Tooth abscess [Recovered/Resolved]
  - Tooth fracture [Unknown]
